FAERS Safety Report 18967267 (Version 1)
Quarter: 2021Q1

REPORT INFORMATION
  Report Type: Spontaneous
  Country: FR (occurrence: FR)
  Receive Date: 20210304
  Receipt Date: 20210304
  Transmission Date: 20210420
  Serious: Yes (Hospitalization, Other)
  Sender: FDA-Public Use
  Company Number: FR-SUN PHARMACEUTICAL INDUSTRIES LTD-2021RR-284113

PATIENT
  Age: 72 Year
  Sex: Female
  Weight: 74 kg

DRUGS (8)
  1. PRAVASTATIN. [Suspect]
     Active Substance: PRAVASTATIN
     Indication: DYSLIPIDAEMIA
     Dosage: 20 MILLIGRAM, DAILY
     Route: 048
     Dates: start: 201610, end: 20210122
  2. FLECAINE 100 MG, COMPRIME SECABLE [Concomitant]
     Active Substance: FLECAINIDE ACETATE
     Indication: PRODUCT USED FOR UNKNOWN INDICATION
     Dosage: 1 DOSAGE FORM, DAILY
     Route: 048
     Dates: start: 201901
  3. JANUVIA [Suspect]
     Active Substance: SITAGLIPTIN PHOSPHATE
     Indication: TYPE 2 DIABETES MELLITUS
     Dosage: 1 DOSAGE FORM, DAILY
     Route: 048
     Dates: start: 201606, end: 20210122
  4. METFORMIN [Suspect]
     Active Substance: METFORMIN HYDROCHLORIDE
     Indication: TYPE 2 DIABETES MELLITUS
     Dosage: 1700 MILLIGRAM, DAILY
     Route: 048
     Dates: end: 20210122
  5. PRADAXA [Suspect]
     Active Substance: DABIGATRAN ETEXILATE MESYLATE
     Indication: ATRIAL FIBRILLATION
     Dosage: 2 DOSAGE FORM, DAILY
     Route: 048
     Dates: start: 201901, end: 20210122
  6. ADENURIC 80 MG, COMPRIME PELLICULE [Suspect]
     Active Substance: FEBUXOSTAT
     Indication: PRODUCT USED FOR UNKNOWN INDICATION
     Dosage: 1 DOSAGE FORM, DAILY
     Route: 048
     Dates: start: 201606, end: 20210122
  7. ENDOTELON 150 MG, COMPRIME ENROBE GASTRO?RESISTANT [Suspect]
     Active Substance: HERBALS\VITIS VINIFERA LEAF
     Indication: PRODUCT USED FOR UNKNOWN INDICATION
     Dosage: 2 DOSAGE FORM, DAILY
     Route: 048
     Dates: end: 20210122
  8. LEVOTHYROX 75 MICROGRAMMES, COMPRIME  SECABLE [Concomitant]
     Active Substance: LEVOTHYROXINE SODIUM
     Indication: HYPOTHYROIDISM
     Dosage: 1 DOSAGE FORM, DAILY
     Route: 048

REACTIONS (2)
  - Tubulointerstitial nephritis [Not Recovered/Not Resolved]
  - Mixed liver injury [Recovering/Resolving]

NARRATIVE: CASE EVENT DATE: 20210121
